FAERS Safety Report 9776089 (Version 4)
Quarter: 2015Q1

REPORT INFORMATION
  Report Type: Spontaneous
  Country: FR (occurrence: FR)
  Receive Date: 20131220
  Receipt Date: 20150311
  Transmission Date: 20150721
  Serious: Yes (Hospitalization, Disabling, Congenital Anomaly, Other)
  Sender: FDA-Public Use
  Company Number: FR-ABBVIE-13P-056-1181127-00

PATIENT
  Sex: Female

DRUGS (1)
  1. DEPAKINE [Suspect]
     Active Substance: VALPROATE SODIUM
     Indication: MATERNAL EXPOSURE TIMING UNSPECIFIED
     Route: 064

REACTIONS (24)
  - Gastritis [Unknown]
  - Premature baby [Unknown]
  - Reading disorder [Unknown]
  - Learning disorder [Unknown]
  - Speech disorder developmental [Unknown]
  - Disturbance in attention [Unknown]
  - Eyelid cyst [Recovering/Resolving]
  - Congenital anomaly [Recovering/Resolving]
  - Growth retardation [Recovering/Resolving]
  - Cough [Unknown]
  - Vomiting [Unknown]
  - Gait disturbance [Recovering/Resolving]
  - Foetal exposure during pregnancy [Unknown]
  - Mental retardation [Recovering/Resolving]
  - Foetal distress syndrome [Unknown]
  - Psychomotor retardation [Unknown]
  - Mental disorder [Unknown]
  - Dehydration [Unknown]
  - Hand-foot-and-mouth disease [Unknown]
  - Rash pruritic [Unknown]
  - Speech disorder [Unknown]
  - Motor developmental delay [Unknown]
  - Social problem [Unknown]
  - Dysgraphia [Unknown]

NARRATIVE: CASE EVENT DATE: 20111017
